FAERS Safety Report 9340897 (Version 1)
Quarter: 2013Q2

REPORT INFORMATION
  Report Type: Spontaneous
  Country: DE (occurrence: DE)
  Receive Date: 20130610
  Receipt Date: 20130610
  Transmission Date: 20140414
  Serious: Yes (Other)
  Sender: FDA-Public Use
  Company Number: DE-ASTRAZENECA-2013SE38740

PATIENT
  Age: 3137 Week
  Sex: Male

DRUGS (1)
  1. ATACAND PLUS [Suspect]
     Indication: CARDIAC FAILURE
     Dosage: 16/12.5, 0.5 DOSAGE FORM DAILY
     Route: 048

REACTIONS (4)
  - Vision blurred [Unknown]
  - Hot flush [Unknown]
  - Renal failure [Unknown]
  - Anuria [Unknown]
